FAERS Safety Report 4456090-3 (Version None)
Quarter: 2004Q3

REPORT INFORMATION
  Report Type: 
  Country: None (occurrence: None)
  Receive Date: 20040922
  Receipt Date: 20040910
  Transmission Date: 20050211
  Serious: Yes (Hospitalization)
  Sender: FDA-Public Use
  Company Number: PHEH2004US09768

PATIENT
  Age: 28 Year
  Sex: Female

DRUGS (5)
  1. ZELNORM [Suspect]
     Indication: IRRITABLE BOWEL SYNDROME
     Dosage: 6 MG, BID
     Route: 048
     Dates: start: 20040907
  2. LAXATIVES [Concomitant]
  3. MUSCLE RELAXANTS [Concomitant]
  4. MIRALAX [Concomitant]
  5. HYOSCYAMINE [Concomitant]

REACTIONS (10)
  - ABDOMINAL PAIN [None]
  - ABNORMAL FAECES [None]
  - ANAL HAEMORRHAGE [None]
  - BACK PAIN [None]
  - DEHYDRATION [None]
  - DIZZINESS [None]
  - HAEMATOCHEZIA [None]
  - PYREXIA [None]
  - VOMITING [None]
  - WHITE BLOOD CELL COUNT INCREASED [None]
